FAERS Safety Report 5573443-0 (Version None)
Quarter: 2007Q4

REPORT INFORMATION
  Report Type: 
  Country: None (occurrence: None)
  Receive Date: 20071220
  Receipt Date: 20071220
  Transmission Date: 20080405
  Serious: Yes (Other)
  Sender: FDA-Public Use
  Company Number: None

PATIENT
  Age: 29 Year
  Sex: Female
  Weight: 62.5964 kg

DRUGS (1)
  1. TOPAMAX [Suspect]
     Indication: MIGRAINE PROPHYLAXIS
     Dosage: TABLET AT NIGHT FOR ONE WEEK 1X PO TABLET IN MORNING AND AT NIGHT 1X PO
     Route: 048
     Dates: start: 20071205, end: 20071214

REACTIONS (3)
  - CONJUNCTIVAL OEDEMA [None]
  - MYOPIA [None]
  - VISUAL ACUITY REDUCED TRANSIENTLY [None]
